FAERS Safety Report 4785918-2 (Version None)
Quarter: 2005Q4

REPORT INFORMATION
  Report Type: 
  Country: None (occurrence: None)
  Receive Date: 20051003
  Receipt Date: 20050921
  Transmission Date: 20060501
  Serious: Yes (Other)
  Sender: FDA-Public Use
  Company Number: PHEH2005US10504

PATIENT
  Sex: Female

DRUGS (1)
  1. MIACALCIN [Suspect]
     Dates: start: 19980101

REACTIONS (7)
  - GALLBLADDER DISORDER [None]
  - NEOPLASM MALIGNANT [None]
  - PELVIC FRACTURE [None]
  - SPINAL FRACTURE [None]
  - SPLENECTOMY [None]
  - SPLENOMEGALY [None]
  - SURGERY [None]
